FAERS Safety Report 6697321-9 (Version None)
Quarter: 2010Q2

REPORT INFORMATION
  Report Type: 
  Country: None (occurrence: None)
  Receive Date: 20100426
  Receipt Date: 20100421
  Transmission Date: 20101027
  Serious: Yes (Life-Threatening)
  Sender: FDA-Public Use
  Company Number: IT-ASTRAZENECA-2010SE17700

PATIENT
  Age: 30 Year
  Sex: Female

DRUGS (4)
  1. SEROQUEL [Suspect]
     Dosage: 1200 MG
     Route: 048
     Dates: start: 20100312, end: 20100312
  2. LORAZEPAM [Suspect]
     Route: 065
     Dates: start: 20100312, end: 20100312
  3. HALDOL [Suspect]
     Route: 048
     Dates: start: 20100312, end: 20100312
  4. TEGRETOL [Suspect]
     Dosage: 20 DOSAGE UNITS TABLETS
     Route: 065
     Dates: start: 20100312, end: 20100312

REACTIONS (4)
  - COMA [None]
  - SELF INJURIOUS BEHAVIOUR [None]
  - TACHYCARDIA [None]
  - VOMITING [None]
